FAERS Safety Report 11056904 (Version 3)
Quarter: 2015Q2

REPORT INFORMATION
  Report Type: Spontaneous
  Country: US (occurrence: US)
  Receive Date: 20150422
  Receipt Date: 20150524
  Transmission Date: 20150821
  Serious: Yes (Life-Threatening, Hospitalization, Disabling, Other)
  Sender: FDA-Public Use
  Company Number: US-JNJFOC-20150312002

PATIENT
  Age: 62 Year
  Sex: Male
  Weight: 81.65 kg

DRUGS (1)
  1. INVOKANA [Suspect]
     Active Substance: CANAGLIFLOZIN
     Indication: BLOOD GLUCOSE DECREASED
     Route: 048
     Dates: start: 20140831, end: 20140919

REACTIONS (6)
  - Abdominal discomfort [Unknown]
  - Dyspnoea [Unknown]
  - Dizziness [Unknown]
  - Vomiting [Unknown]
  - Hypersensitivity [Unknown]
  - Diarrhoea [Recovered/Resolved]
